FAERS Safety Report 12812732 (Version 1)
Quarter: 2016Q4

REPORT INFORMATION
  Report Type: Spontaneous
  Country: GB (occurrence: GB)
  Receive Date: 20161005
  Receipt Date: 20161005
  Transmission Date: 20170207
  Serious: Yes (Life-Threatening, Hospitalization)
  Sender: FDA-Public Use
  Company Number: GB-TEVA-697653ACC

PATIENT
  Age: 65 Year
  Sex: Male

DRUGS (2)
  1. ERYTHROMYCIN. [Suspect]
     Active Substance: ERYTHROMYCIN
     Indication: ROSACEA
     Dosage: 1000 MILLIGRAM DAILY;
     Route: 048
     Dates: start: 20160722, end: 20160805
  2. COD LIVER OIL [Concomitant]
     Active Substance: COD LIVER OIL

REACTIONS (2)
  - Bradycardia [Unknown]
  - Liver function test increased [Unknown]

NARRATIVE: CASE EVENT DATE: 20160908
